FAERS Safety Report 21093412 (Version 1)
Quarter: 2022Q3

REPORT INFORMATION
  Report Type: Spontaneous
  Country: ZW (occurrence: ZW)
  Receive Date: 20220718
  Receipt Date: 20220718
  Transmission Date: 20221027
  Serious: Yes (Other)
  Sender: FDA-Public Use
  Company Number: ZW-STRIDES ARCOLAB LIMITED-2022SP008944

PATIENT
  Sex: Female

DRUGS (5)
  1. LAMIVUDINE\ZIDOVUDINE [Suspect]
     Active Substance: LAMIVUDINE\ZIDOVUDINE
     Indication: HIV infection
     Dosage: 2 (UNITS UNKNOWN) TAB/CAPS
     Route: 048
     Dates: start: 20210616
  2. PREZISTA [Suspect]
     Active Substance: DARUNAVIR ETHANOLATE
     Indication: HIV infection
     Dosage: 800 MILLIGRAM PER DAY
     Route: 048
     Dates: start: 20210616
  3. TIVICAY [Suspect]
     Active Substance: DOLUTEGRAVIR SODIUM
     Indication: HIV infection
     Dosage: 50 MILLIGRAM PER DAY
     Route: 048
     Dates: start: 20210519, end: 20210615
  4. LAMIVUDINE AND TENOFOVIR DISOPROXIL FUMARATE [Suspect]
     Active Substance: LAMIVUDINE\TENOFOVIR DISOPROXIL FUMARATE
     Indication: HIV infection
     Dosage: 1 (UNITS UNKNOWN) TAB/CAPS
     Route: 048
     Dates: start: 20210519, end: 20210615
  5. NORVIR [Suspect]
     Active Substance: RITONAVIR
     Indication: HIV infection
     Dosage: 100 MILLIGRAM PER DAY
     Route: 048
     Dates: start: 20210616

REACTIONS (2)
  - Abortion spontaneous [Unknown]
  - Maternal exposure during pregnancy [Unknown]

NARRATIVE: CASE EVENT DATE: 20210915
